FAERS Safety Report 8430234-0 (Version None)
Quarter: 2012Q2

REPORT INFORMATION
  Report Type: 
  Country: None (occurrence: None)
  Receive Date: 20120612
  Receipt Date: 20120610
  Transmission Date: 20120825
  Serious: Yes (Other)
  Sender: FDA-Public Use
  Company Number: PL-BAYER-2012-057168

PATIENT
  Age: 30 Year
  Sex: Female

DRUGS (1)
  1. BETASERON [Suspect]
     Dosage: 250 ?G, UNK
     Route: 058
     Dates: start: 20101027, end: 20120301

REACTIONS (1)
  - PSYCHOTIC DISORDER [None]
